FAERS Safety Report 23638372 (Version 1)
Quarter: 2024Q1

REPORT INFORMATION
  Report Type: Spontaneous
  Country: FR (occurrence: FR)
  Receive Date: 20240315
  Receipt Date: 20240315
  Transmission Date: 20240409
  Serious: Yes (Life-Threatening, Hospitalization, Other)
  Sender: FDA-Public Use
  Company Number: FR-PFIZER INC-PV202400027307

PATIENT
  Age: 17 Month
  Sex: Female

DRUGS (28)
  1. MORPHINE SULFATE [Suspect]
     Active Substance: MORPHINE SULFATE
     Indication: Dystonia
     Dosage: UNK
     Route: 065
     Dates: start: 20150412
  2. MORPHINE SULFATE [Suspect]
     Active Substance: MORPHINE SULFATE
     Indication: Tongue biting
  3. ARTANE [Suspect]
     Active Substance: TRIHEXYPHENIDYL HYDROCHLORIDE
     Indication: Tongue biting
     Dosage: UNK
     Route: 065
     Dates: start: 201504
  4. ARTANE [Suspect]
     Active Substance: TRIHEXYPHENIDYL HYDROCHLORIDE
     Indication: Dystonia
  5. DIAZEPAM [Suspect]
     Active Substance: DIAZEPAM
     Indication: Dystonia
     Dosage: 0.5 MG/KG
     Route: 065
     Dates: start: 20150413
  6. DIAZEPAM [Suspect]
     Active Substance: DIAZEPAM
     Indication: Tongue biting
  7. OXCARBAZEPINE [Suspect]
     Active Substance: OXCARBAZEPINE
     Indication: Dystonia
     Dosage: UNK
     Route: 065
     Dates: start: 201504
  8. OXCARBAZEPINE [Suspect]
     Active Substance: OXCARBAZEPINE
     Indication: Tongue biting
  9. OXCARBAZEPINE [Suspect]
     Active Substance: OXCARBAZEPINE
     Indication: Sedation
  10. OXCARBAZEPINE [Suspect]
     Active Substance: OXCARBAZEPINE
     Indication: Analgesic therapy
  11. FOSPHENYTOIN SODIUM [Suspect]
     Active Substance: FOSPHENYTOIN SODIUM
     Indication: Dystonia
     Dosage: 15 MG/KG
     Route: 065
     Dates: start: 20150413
  12. FOSPHENYTOIN SODIUM [Suspect]
     Active Substance: FOSPHENYTOIN SODIUM
     Indication: Tongue biting
  13. ACETAMINOPHEN [Suspect]
     Active Substance: ACETAMINOPHEN
     Indication: Tongue biting
     Dosage: UNK
     Route: 065
     Dates: start: 20150412
  14. ACETAMINOPHEN [Suspect]
     Active Substance: ACETAMINOPHEN
     Indication: Dystonia
  15. HYDROXYZINE [Suspect]
     Active Substance: HYDROXYZINE HYDROCHLORIDE
     Indication: Dystonia
     Dosage: UNK
     Route: 065
     Dates: start: 20150414
  16. HYDROXYZINE [Suspect]
     Active Substance: HYDROXYZINE HYDROCHLORIDE
     Indication: Tongue biting
  17. CLONAZEPAM [Suspect]
     Active Substance: CLONAZEPAM
     Indication: Dystonia
     Dosage: 0.05 MG, DAILY
     Route: 065
     Dates: start: 201504
  18. CLONAZEPAM [Suspect]
     Active Substance: CLONAZEPAM
     Indication: Tongue biting
     Dosage: 0.1 MG, DAILY
     Route: 065
     Dates: start: 201504
  19. CLONAZEPAM [Suspect]
     Active Substance: CLONAZEPAM
     Indication: Sedation
  20. CLONAZEPAM [Suspect]
     Active Substance: CLONAZEPAM
     Indication: Analgesic therapy
  21. MIDAZOLAM [Concomitant]
     Active Substance: MIDAZOLAM
     Indication: Sedation
     Dosage: UNK
     Route: 065
     Dates: start: 201504
  22. AMOXICILLIN\CLAVULANIC ACID [Concomitant]
     Active Substance: AMOXICILLIN\CLAVULANIC ACID
     Indication: Encephalitis
     Dosage: UNK
     Route: 065
     Dates: start: 20150413
  23. XENAZINE [Concomitant]
     Active Substance: TETRABENAZINE
     Indication: Tongue biting
     Dosage: UNK
     Route: 065
     Dates: start: 20150430
  24. XENAZINE [Concomitant]
     Active Substance: TETRABENAZINE
     Indication: Dystonia
     Dosage: LESS THAN OR EQUAL TO 5.8 MG/KG PER DAY
     Route: 065
  25. SUFENTANIL [Concomitant]
     Active Substance: SUFENTANIL
     Indication: Sedation
     Dosage: UNK
     Route: 065
     Dates: start: 201504
  26. ACYCLOVIR [Concomitant]
     Active Substance: ACYCLOVIR
     Indication: Encephalitis
     Dosage: UNK
     Route: 065
     Dates: start: 20150413
  27. LEVODOPA [Concomitant]
     Active Substance: LEVODOPA
     Indication: Dystonia
     Dosage: LESS THAN OR EQUAL TO 3 MG/KG, DAILY
     Route: 065
     Dates: start: 20150430
  28. LEVODOPA [Concomitant]
     Active Substance: LEVODOPA
     Indication: Tongue biting

REACTIONS (2)
  - Drug ineffective [Recovering/Resolving]
  - Off label use [Unknown]
